FAERS Safety Report 16957142 (Version 5)
Quarter: 2019Q4

REPORT INFORMATION
  Report Type: Spontaneous
  Country: JP (occurrence: JP)
  Receive Date: 20191024
  Receipt Date: 20191129
  Transmission Date: 20200122
  Serious: Yes (Hospitalization)
  Sender: FDA-Public Use
  Company Number: JP-JNJFOC-20191007287

PATIENT
  Age: 96 Year
  Sex: Male

DRUGS (6)
  1. CEFAZOLIN SODIUM. [Suspect]
     Active Substance: CEFAZOLIN SODIUM
     Indication: PRODUCT USED FOR UNKNOWN INDICATION
  2. LEUPLIN [Suspect]
     Active Substance: LEUPROLIDE ACETATE
     Indication: PROSTATE CANCER
     Dosage: ^3.75^
     Route: 065
     Dates: start: 201901, end: 20190820
  3. LEVOFLOXACIN HEMIHYDRATE [Suspect]
     Active Substance: LEVOFLOXACIN
     Indication: INFECTION PROPHYLAXIS
     Route: 048
     Dates: start: 20190925, end: 20190930
  4. ERLEADA [Suspect]
     Active Substance: APALUTAMIDE
     Indication: PROSTATE CANCER
     Dosage: 60 MG
     Route: 048
     Dates: start: 20190903, end: 20190910
  5. ERLEADA [Suspect]
     Active Substance: APALUTAMIDE
     Route: 048
     Dates: start: 20190927, end: 20191005
  6. LEUPLIN [Suspect]
     Active Substance: LEUPROLIDE ACETATE
     Dosage: ^3.75^
     Route: 065
     Dates: start: 201408, end: 201505

REACTIONS (5)
  - Decreased appetite [Unknown]
  - Interstitial lung disease [Recovering/Resolving]
  - Oedema peripheral [Recovered/Resolved]
  - Taste disorder [Recovered/Resolved]
  - Drug eruption [Recovered/Resolved]

NARRATIVE: CASE EVENT DATE: 2019
